FAERS Safety Report 6374434-2 (Version None)
Quarter: 2009Q3

REPORT INFORMATION
  Report Type: 
  Country: None (occurrence: None)
  Receive Date: 20090924
  Receipt Date: 20090915
  Transmission Date: 20100115
  Serious: Yes (Life-Threatening)
  Sender: FDA-Public Use
  Company Number: FR-PFIZER INC-2009262266

PATIENT
  Age: 70 Year

DRUGS (8)
  1. TAHOR [Suspect]
     Dosage: 10 MG, UNK
     Dates: end: 20090815
  2. EFFERALGAN [Suspect]
     Indication: TOOTH DISORDER
     Dosage: 500 MG, 1X/DAY
     Dates: start: 20090801, end: 20090815
  3. BIRODOGYL [Suspect]
     Indication: TOOTH DISORDER
     Dosage: UNK
     Dates: start: 20090801, end: 20090806
  4. APROVEL [Suspect]
     Dosage: UNK
     Dates: end: 20090815
  5. INIPOMP [Suspect]
     Dosage: UNK
     Dates: end: 20090815
  6. KARDEGIC [Concomitant]
     Dosage: UNK
     Dates: end: 20090815
  7. LEVOTHYROXINE SODIUM [Concomitant]
     Dosage: UNK
     Dates: end: 20090815
  8. INSULIN [Concomitant]
     Dosage: UNK

REACTIONS (3)
  - CYTOLYTIC HEPATITIS [None]
  - JAUNDICE [None]
  - PROTHROMBIN TIME RATIO DECREASED [None]
